FAERS Safety Report 10633945 (Version 1)
Quarter: 2014Q4

REPORT INFORMATION
  Report Type: Spontaneous
  Country: IT (occurrence: IT)
  Receive Date: 20141205
  Receipt Date: 20141205
  Transmission Date: 20150529
  Serious: Yes (Hospitalization)
  Sender: FDA-Public Use
  Company Number: IT-TEVA-524797ISR

PATIENT
  Age: 69 Year
  Sex: Male

DRUGS (5)
  1. RAMIPRIL/IDROCLOROTIAZIDE [Concomitant]
     Route: 048
  2. LAMICTAL [Concomitant]
     Active Substance: LAMOTRIGINE
     Dosage: 100 MILLIGRAM DAILY;
     Route: 048
  3. XATRAL [Concomitant]
     Active Substance: ALFUZOSIN
     Dosage: 10 MILLIGRAM DAILY;
     Route: 048
  4. CARBOLITHIUM [Suspect]
     Active Substance: LITHIUM CARBONATE
     Dosage: 900 MILLIGRAM DAILY;
     Route: 048
  5. ATENOLOLO [Concomitant]
     Active Substance: ATENOLOL
     Dosage: 100 MILLIGRAM DAILY;
     Route: 048

REACTIONS (4)
  - Balance disorder [Unknown]
  - Dysarthria [Unknown]
  - Dyskinesia [Unknown]
  - Toxicity to various agents [Unknown]

NARRATIVE: CASE EVENT DATE: 20140901
